FAERS Safety Report 13139350 (Version 2)
Quarter: 2017Q1

REPORT INFORMATION
  Report Type: Report from Study
  Country: CA (occurrence: CA)
  Receive Date: 20170123
  Receipt Date: 20170125
  Transmission Date: 20170428
  Serious: Yes (Other)
  Sender: FDA-Public Use
  Company Number: CA-JNJFOC-20170113549

PATIENT
  Age: 17 Year
  Sex: Female

DRUGS (2)
  1. IMURAN [Concomitant]
     Active Substance: AZATHIOPRINE
     Route: 048
  2. REMICADE [Suspect]
     Active Substance: INFLIXIMAB
     Indication: CROHN^S DISEASE
     Route: 042
     Dates: start: 20130917

REACTIONS (4)
  - Product use issue [Unknown]
  - Infectious mononucleosis [Recovering/Resolving]
  - Off label use [Unknown]
  - Tonsillitis [Recovering/Resolving]

NARRATIVE: CASE EVENT DATE: 20130917
